FAERS Safety Report 23129947 (Version 1)
Quarter: 2023Q4

REPORT INFORMATION
  Report Type: Report from Study
  Country: JP (occurrence: JP)
  Receive Date: 20231031
  Receipt Date: 20231031
  Transmission Date: 20240110
  Serious: Yes (Other)
  Sender: FDA-Public Use
  Company Number: JP-TAKEDA-2023TJP013716

PATIENT
  Age: 59 Year
  Sex: Male
  Weight: 74 kg

DRUGS (15)
  1. PANITUMUMAB [Suspect]
     Active Substance: PANITUMUMAB
     Indication: Colorectal adenocarcinoma
     Dosage: 440 MILLIGRAM
     Route: 065
     Dates: start: 20201118, end: 20201118
  2. PANITUMUMAB [Suspect]
     Active Substance: PANITUMUMAB
     Dosage: 440 MILLIGRAM
     Route: 065
     Dates: start: 20201209, end: 20201209
  3. PANITUMUMAB [Suspect]
     Active Substance: PANITUMUMAB
     Dosage: 440 MILLIGRAM
     Route: 065
     Dates: start: 20210106, end: 20210106
  4. PANITUMUMAB [Suspect]
     Active Substance: PANITUMUMAB
     Dosage: 352 MILLIGRAM
     Route: 065
     Dates: start: 20210203, end: 20210203
  5. PANITUMUMAB [Suspect]
     Active Substance: PANITUMUMAB
     Dosage: 260 MILLIGRAM, Q2WK
     Route: 065
     Dates: start: 20210317, end: 20210331
  6. PANITUMUMAB [Suspect]
     Active Substance: PANITUMUMAB
     Dosage: 260 MILLIGRAM
     Route: 065
     Dates: start: 20210421, end: 20210421
  7. PANITUMUMAB [Suspect]
     Active Substance: PANITUMUMAB
     Dosage: 260 MILLIGRAM
     Route: 065
     Dates: start: 20210519, end: 20210519
  8. IRINOTECAN [Suspect]
     Active Substance: IRINOTECAN
     Indication: Colorectal adenocarcinoma
     Dosage: 260 MILLIGRAM
     Route: 065
     Dates: start: 20201118, end: 20201118
  9. IRINOTECAN [Suspect]
     Active Substance: IRINOTECAN
     Dosage: 260 MILLIGRAM
     Route: 065
     Dates: start: 20201209, end: 20201209
  10. IRINOTECAN [Suspect]
     Active Substance: IRINOTECAN
     Dosage: 260 MILLIGRAM
     Route: 065
     Dates: start: 20210106, end: 20210106
  11. IRINOTECAN [Suspect]
     Active Substance: IRINOTECAN
     Dosage: 260 MILLIGRAM
     Route: 065
     Dates: start: 20210203, end: 20210203
  12. IRINOTECAN [Suspect]
     Active Substance: IRINOTECAN
     Dosage: 260 MILLIGRAM
     Route: 065
     Dates: start: 20210224, end: 20210224
  13. IRINOTECAN [Suspect]
     Active Substance: IRINOTECAN
     Dosage: 260 MILLIGRAM, Q2WEEKS
     Route: 065
     Dates: start: 20210317, end: 20210331
  14. IRINOTECAN [Suspect]
     Active Substance: IRINOTECAN
     Dosage: 260 MILLIGRAM
     Route: 065
     Dates: start: 20210421, end: 20210421
  15. IRINOTECAN [Suspect]
     Active Substance: IRINOTECAN
     Dosage: 260 MILLIGRAM
     Route: 065
     Dates: start: 20210519, end: 20210519

REACTIONS (17)
  - Neutrophil count decreased [Unknown]
  - Blood albumin decreased [Unknown]
  - Adjusted calcium decreased [Recovered/Resolved]
  - Peripheral sensory neuropathy [Recovered/Resolved]
  - Aspartate aminotransferase increased [Unknown]
  - Alanine aminotransferase increased [Unknown]
  - Haemoglobin decreased [Unknown]
  - Dermatitis acneiform [Recovered/Resolved]
  - Paronychia [Recovered/Resolved]
  - Blood magnesium decreased [Unknown]
  - Stomatitis [Recovered/Resolved]
  - Diarrhoea [Recovered/Resolved]
  - Palmar-plantar erythrodysaesthesia syndrome [Recovered/Resolved]
  - Alopecia [Recovered/Resolved]
  - Pyrexia [Unknown]
  - Haematochezia [Unknown]
  - Haematuria [Unknown]
